APPROVED DRUG PRODUCT: FLUCYTOSINE
Active Ingredient: FLUCYTOSINE
Strength: 500MG
Dosage Form/Route: CAPSULE;ORAL
Application: A218005 | Product #002 | TE Code: AB
Applicant: LAURUS LABS LTD
Approved: Jul 23, 2025 | RLD: No | RS: No | Type: RX